FAERS Safety Report 13450325 (Version 1)
Quarter: 2017Q2

REPORT INFORMATION
  Report Type: Spontaneous
  Country: US (occurrence: US)
  Receive Date: 20170417
  Receipt Date: 20170417
  Transmission Date: 20170830
  Serious: No
  Sender: FDA-Public Use
  Company Number: US-TEVA-760390ACC

PATIENT
  Age: 44 Year
  Sex: Female

DRUGS (5)
  1. METHYLPHENID [Concomitant]
     Active Substance: METHYLPHENIDATE
  2. HYDROCODONE [Concomitant]
     Active Substance: HYDROCODONE
  3. COPAXONE [Suspect]
     Active Substance: GLATIRAMER ACETATE
     Indication: MULTIPLE SCLEROSIS
     Dosage: 20 MILLIGRAM/MILLILITERS DAILY;
     Route: 058
     Dates: start: 20140909
  4. PREDNISONE. [Concomitant]
     Active Substance: PREDNISONE
  5. TEMAZEPAM. [Concomitant]
     Active Substance: TEMAZEPAM

REACTIONS (2)
  - Infection [Unknown]
  - Drug dose omission [Unknown]

NARRATIVE: CASE EVENT DATE: 201703
